FAERS Safety Report 5277924-9 (Version None)
Quarter: 2007Q1

REPORT INFORMATION
  Report Type: 
  Country: None (occurrence: None)
  Receive Date: 20070327
  Receipt Date: 20070315
  Transmission Date: 20070707
  Serious: Yes (Hospitalization, Other)
  Sender: FDA-Public Use
  Company Number: FR-PFIZER INC-2007022123

PATIENT
  Age: 81 Year
  Sex: Male

DRUGS (18)
  1. LYRICA [Suspect]
     Route: 048
     Dates: start: 20061230, end: 20070115
  2. OXYCONTIN [Suspect]
     Route: 048
  3. OXYNORM [Suspect]
     Route: 048
  4. TRAMADOL HCL [Suspect]
     Route: 048
     Dates: start: 20070113, end: 20070114
  5. BUFLOMEDIL [Concomitant]
  6. BISOPROLOL FUMARATE [Concomitant]
  7. LISINOPRIL [Concomitant]
  8. FENOFIBRATE [Concomitant]
  9. FLUINDIONE [Concomitant]
     Dates: end: 20061227
  10. FUROSEMIDE [Concomitant]
  11. AMLODIPINE [Concomitant]
  12. GLICLAZIDE [Concomitant]
  13. TAMSULOSIN HCL [Concomitant]
  14. ZOLPIDEM TARTRATE [Concomitant]
  15. FINASTERIDE [Concomitant]
  16. HEPARIN [Concomitant]
  17. INSULIN [Concomitant]
  18. OMEPRAZOLE [Concomitant]
     Dates: start: 20061221

REACTIONS (4)
  - DYSARTHRIA [None]
  - MENTAL IMPAIRMENT [None]
  - MIOSIS [None]
  - MYOCLONUS [None]
